FAERS Safety Report 9193906 (Version 1)
Quarter: 2013Q1

REPORT INFORMATION
  Report Type: Spontaneous
  Country: IT (occurrence: IT)
  Receive Date: 20130327
  Receipt Date: 20130327
  Transmission Date: 20140127
  Serious: Yes (Other)
  Sender: FDA-Public Use
  Company Number: IT-PFIZER INC-2013095364

PATIENT
  Age: 11 Month
  Sex: Male

DRUGS (1)
  1. REFACTO AF [Suspect]
     Indication: HAEMOPHILIA
     Dosage: 1000 IU, AS NEEDED
     Route: 042
     Dates: start: 20120917, end: 20121107

REACTIONS (1)
  - Anti factor VIII antibody positive [Recovered/Resolved]
